FAERS Safety Report 9085189 (Version 1)
Quarter: 2013Q1

REPORT INFORMATION
  Report Type: Report from Study
  Country: US (occurrence: US)
  Receive Date: 20130131
  Receipt Date: 20130131
  Transmission Date: 20140127
  Serious: No
  Sender: FDA-Public Use
  Company Number: US-ABBOTT-12P-163-1002393-00

PATIENT
  Sex: Male

DRUGS (3)
  1. HUMIRA [Suspect]
     Route: 058
     Dates: start: 2010, end: 201208
  2. HUMIRA [Suspect]
     Route: 058
     Dates: start: 20120822, end: 20121017
  3. HUMIRA [Suspect]
     Route: 058
     Dates: start: 20121017

REACTIONS (1)
  - Drug ineffective [Recovered/Resolved]
